FAERS Safety Report 10542218 (Version 2)
Quarter: 2014Q4

REPORT INFORMATION
  Report Type: Report from Study
  Country: CO (occurrence: CO)
  Receive Date: 20141024
  Receipt Date: 20141024
  Transmission Date: 20150529
  Serious: Yes (Hospitalization)
  Sender: FDA-Public Use
  Company Number: CO-009507513-1008USA01097

PATIENT
  Age: 88 Year
  Sex: Male
  Weight: 75 kg

DRUGS (16)
  1. PLASIL ENZYMATICO [Concomitant]
     Route: 048
     Dates: start: 20090301, end: 20091115
  2. WINADEINE [Concomitant]
     Route: 048
     Dates: start: 20090301, end: 20091115
  3. ELAVIL [Suspect]
     Active Substance: AMITRIPTYLINE HYDROCHLORIDE
     Dosage: UNK
     Route: 048
     Dates: start: 20090410, end: 20090420
  4. METADOXINE [Concomitant]
     Dosage: 1000 MG, QD
     Route: 048
     Dates: start: 20090301, end: 20091115
  5. FUROSEMIDE. [Concomitant]
     Active Substance: FUROSEMIDE
     Dosage: 80 MG, QD
     Route: 048
     Dates: start: 20090301, end: 20091115
  6. ASPIRIN. [Concomitant]
     Active Substance: ASPIRIN
     Dosage: 100 MG, QD
     Route: 048
     Dates: start: 20070312, end: 20091115
  7. CARBAMAZEPINE. [Suspect]
     Active Substance: CARBAMAZEPINE
     Route: 048
     Dates: start: 20090410, end: 20090420
  8. CLOPIDOGREL BISULFATE. [Concomitant]
     Active Substance: CLOPIDOGREL BISULFATE
     Dosage: 75 MG, QD
     Route: 048
     Dates: start: 20070312, end: 20091115
  9. EZETIMIBE AND SIMVASTATIN [Suspect]
     Active Substance: EZETIMIBE\SIMVASTATIN
     Indication: ACUTE CORONARY SYNDROME
     Dosage: UNK
     Route: 048
     Dates: start: 20070322
  10. CASODEX [Concomitant]
     Active Substance: BICALUTAMIDE
     Dosage: 100 MG, QD
     Route: 048
     Dates: start: 20071204, end: 20091115
  11. METOPROLOL [Concomitant]
     Active Substance: METOPROLOL
     Dosage: 50 MG, QD
     Route: 048
     Dates: start: 20090301, end: 20091115
  12. LANSOPRAZOLE. [Concomitant]
     Active Substance: LANSOPRAZOLE
     Dosage: 30 MG, QD
     Route: 048
     Dates: start: 20090301, end: 20091115
  13. LOSARTAN POTASSIUM. [Concomitant]
     Active Substance: LOSARTAN POTASSIUM
     Dosage: 25 MG, QD
     Route: 048
     Dates: start: 20090301, end: 20091115
  14. HYDROCHLOROTHIAZIDE. [Concomitant]
     Active Substance: HYDROCHLOROTHIAZIDE
     Dosage: 25 MG, QD
     Route: 048
     Dates: start: 20090301, end: 20091115
  15. SULTAMICILLIN [Concomitant]
     Active Substance: SULTAMICILLIN
     Dosage: 750 MG, QD
     Route: 048
     Dates: start: 20090301, end: 20091115
  16. GLUCOBAY [Concomitant]
     Active Substance: ACARBOSE
     Dosage: 2 DF, QD
     Route: 048
     Dates: start: 20090301, end: 20091115

REACTIONS (1)
  - Eczema [Recovered/Resolved]

NARRATIVE: CASE EVENT DATE: 20090419
